FAERS Safety Report 21184330 (Version 1)
Quarter: 2022Q3

REPORT INFORMATION
  Report Type: Spontaneous
  Country: CA (occurrence: CA)
  Receive Date: 20220808
  Receipt Date: 20220808
  Transmission Date: 20221027
  Serious: Yes (Other)
  Sender: FDA-Public Use
  Company Number: CA-TEVA-2022-CA-2061033

PATIENT

DRUGS (1)
  1. VENLAFAXINE HYDROCHLORIDE [Suspect]
     Active Substance: VENLAFAXINE HYDROCHLORIDE
     Indication: Product used for unknown indication
     Route: 065

REACTIONS (17)
  - Constipation [Unknown]
  - Depression [Unknown]
  - Dry mouth [Unknown]
  - Dyspepsia [Unknown]
  - Dyspepsia [Unknown]
  - Feeling abnormal [Unknown]
  - Hepatotoxicity [Unknown]
  - Hypoaesthesia [Unknown]
  - Lethargy [Unknown]
  - Lip dry [Unknown]
  - Musculoskeletal stiffness [Unknown]
  - Pain [Unknown]
  - Panic attack [Unknown]
  - Product contamination [Unknown]
  - Restlessness [Unknown]
  - Sexual dysfunction [Unknown]
  - Heart rate increased [Unknown]
